FAERS Safety Report 18612548 (Version 2)
Quarter: 2020Q4

REPORT INFORMATION
  Report Type: Report from Study
  Country: US (occurrence: US)
  Receive Date: 20201214
  Receipt Date: 20201229
  Transmission Date: 20210114
  Serious: Yes (Hospitalization, Other)
  Sender: FDA-Public Use
  Company Number: US-BRISTOL-MYERS SQUIBB COMPANY-BMS-2020-104244

PATIENT
  Sex: Male

DRUGS (1)
  1. APIXABAN [Suspect]
     Active Substance: APIXABAN
     Indication: MYOCARDIAL INFARCTION
     Route: 065

REACTIONS (6)
  - Coronary artery disease [Unknown]
  - Cerebrovascular accident [Unknown]
  - Thrombosis [Unknown]
  - Disability [Unknown]
  - Cardiac disorder [Unknown]
  - Intentional product use issue [Unknown]
